FAERS Safety Report 16527811 (Version 4)
Quarter: 2019Q3

REPORT INFORMATION
  Report Type: Spontaneous
  Country: US (occurrence: US)
  Receive Date: 20190703
  Receipt Date: 20190829
  Transmission Date: 20191004
  Serious: Yes (Other)
  Sender: FDA-Public Use
  Company Number: US-PFIZER INC-2016552988

PATIENT
  Age: 51 Year
  Sex: Male
  Weight: 81.65 kg

DRUGS (17)
  1. LYRICA [Suspect]
     Active Substance: PREGABALIN
     Indication: NEURALGIA
     Dosage: 75 MG, ALTERNATE DAY (1 TAB ON: TUESDAY THURSDAY SATURDAY AND SUNDAY)
     Route: 048
  2. CALCIUM [Concomitant]
     Active Substance: CALCIUM
     Dosage: UNK
     Dates: start: 2008
  3. LEVOTHYROXINE. [Concomitant]
     Active Substance: LEVOTHYROXINE
     Dosage: UNK
  4. MINOXIDIL. [Concomitant]
     Active Substance: MINOXIDIL
     Dosage: UNK
     Dates: start: 201710
  5. COREG [Concomitant]
     Active Substance: CARVEDILOL
     Dosage: UNK
  6. CHOLESTYRAMINE. [Concomitant]
     Active Substance: CHOLESTYRAMINE
     Dosage: UNK
  7. TRIPHROCAPS [Concomitant]
     Active Substance: ASCORBIC ACID\BIOTIN\CALCIUM PANTOTHENATE\CYANOCOBALAMIN\FOLIC ACID\NIACINAMIDE\PYRIDOXINE HYDROCHLORIDE\RIBOFLAVIN\THIAMINE HYDROCHLORIDE
     Dosage: UNK
  8. ALLOPURINOL. [Concomitant]
     Active Substance: ALLOPURINOL
     Dosage: UNK
  9. EPOGEN [Concomitant]
     Active Substance: ERYTHROPOIETIN
     Dosage: UNK
     Dates: end: 201710
  10. PHOSLO [Concomitant]
     Active Substance: CALCIUM ACETATE
     Dosage: UNK
     Dates: start: 201710
  11. LYRICA [Suspect]
     Active Substance: PREGABALIN
     Indication: NEUROPATHY PERIPHERAL
     Dosage: 150 MG, ALTERNATE DAY (2 TABS ON MONDAY WEDNESDAY, AND FRIDAY)
     Route: 048
  12. LYRICA [Suspect]
     Active Substance: PREGABALIN
     Dosage: 75 MG, 1X/DAY
     Dates: start: 2008
  13. ASA [Concomitant]
     Active Substance: ASPIRIN
     Dosage: UNK
  14. LYRICA [Suspect]
     Active Substance: PREGABALIN
     Dosage: 75 MG, 1X/DAY
     Route: 048
     Dates: start: 2009
  15. HYDROCORTISONE. [Concomitant]
     Active Substance: HYDROCORTISONE
     Dosage: UNK
  16. SOLU-CORTEF [Concomitant]
     Active Substance: HYDROCORTISONE SODIUM SUCCINATE
     Dosage: UNK
     Dates: start: 201709
  17. LISINOPRIL. [Concomitant]
     Active Substance: LISINOPRIL
     Dosage: UNK

REACTIONS (3)
  - Cytomegalovirus infection [Unknown]
  - Cerebrovascular accident [Unknown]
  - Renal failure [Not Recovered/Not Resolved]

NARRATIVE: CASE EVENT DATE: 2011
